FAERS Safety Report 7809087-7 (Version None)
Quarter: 2011Q4

REPORT INFORMATION
  Report Type: 
  Country: None (occurrence: None)
  Receive Date: 20111012
  Receipt Date: 20110929
  Transmission Date: 20120403
  Serious: Yes (Hospitalization)
  Sender: FDA-Public Use
  Company Number: CA-ELI_LILLY_AND_COMPANY-CA201110000350

PATIENT
  Age: 69 Year
  Sex: Female

DRUGS (15)
  1. SINGULAIR [Concomitant]
     Dosage: 10 MG, UNK
  2. FORTEO [Suspect]
     Indication: OSTEOPOROSIS
     Dosage: 20 UG, QD
     Route: 058
     Dates: start: 20100323, end: 20110831
  3. UNIPHYL [Concomitant]
     Dosage: 600 MG, UNK
  4. WELLBUTRIN XL [Concomitant]
     Dosage: 150 MG, UNK
  5. CRESTOR [Concomitant]
     Dosage: 20 MG, UNK
  6. PREDNISONE [Concomitant]
     Dosage: 5 MG, UNK
  7. PANTOPRAZOLE [Concomitant]
  8. CALCIUM CARBONATE [Concomitant]
  9. POTASSIUM [Concomitant]
  10. TIAZAC [Concomitant]
     Dosage: 150 MG, UNK
  11. NOVO-GESIC [Concomitant]
     Dosage: 500 MG, UNK
  12. HYDROCHLOROTHIAZIDE [Concomitant]
     Dosage: 12 MG, UNK
  13. AVAPRO [Concomitant]
     Dosage: 150 MG, UNK
  14. FOSAMAX [Concomitant]
     Dosage: 70 MG, UNK
  15. CALCITE [Concomitant]
     Dosage: 500 MG, UNK

REACTIONS (3)
  - FALL [None]
  - HIP FRACTURE [None]
  - UPPER LIMB FRACTURE [None]
